FAERS Safety Report 5473053-X (Version None)
Quarter: 2007Q4

REPORT INFORMATION
  Report Type: 
  Country: None (occurrence: None)
  Receive Date: 20071001
  Receipt Date: 20070315
  Transmission Date: 20080405
  Serious: No
  Sender: FDA-Public Use
  Company Number: US-ASTRAZENECA-2007UW05010

PATIENT
  Age: 48 Year
  Sex: Female

DRUGS (3)
  1. ARIMIDEX [Suspect]
     Indication: BREAST CANCER
     Route: 048
     Dates: start: 20000101, end: 20070101
  2. ARIMIDEX [Suspect]
     Dosage: EVERY 3 DAYS
     Route: 048
     Dates: start: 20070201
  3. NUTRITIONAL SUPPLEMENTS [Concomitant]

REACTIONS (4)
  - ALOPECIA [None]
  - HOT FLUSH [None]
  - NEUROPATHY [None]
  - PAIN IN EXTREMITY [None]
